FAERS Safety Report 16164660 (Version 1)
Quarter: 2019Q2

REPORT INFORMATION
  Report Type: Other
  Country: FR (occurrence: FR)
  Receive Date: 20190405
  Receipt Date: 20190405
  Transmission Date: 20190711
  Serious: Yes (Death)
  Sender: FDA-Public Use
  Company Number: FR-B. BRAUN MEDICAL INC.-2065380

PATIENT
  Age: 65 Year
  Sex: Male

DRUGS (4)
  1. GENTAMYCIN [Concomitant]
     Active Substance: GENTAMICIN
  2. DAPTOMYCIN. [Concomitant]
     Active Substance: DAPTOMYCIN
  3. RIFAMPICIN [Concomitant]
     Active Substance: RIFAMPIN
  4. CEFAZOLIN FOR INJECTION USP AND DEXTROSE INJECTION USP 0264-3103-11 (N [Suspect]
     Active Substance: CEFAZOLIN
     Route: 042

REACTIONS (2)
  - Hypoprothrombinaemia [None]
  - Vitamin K deficiency [None]
